FAERS Safety Report 19690152 (Version 1)
Quarter: 2021Q3

REPORT INFORMATION
  Report Type: Other
  Country: CA (occurrence: CA)
  Receive Date: 20210812
  Receipt Date: 20210812
  Transmission Date: 20211014
  Serious: Yes (Other)
  Sender: FDA-Public Use
  Company Number: CA-APOTEX-2021AP028753

PATIENT
  Age: 59 Year
  Sex: Male

DRUGS (5)
  1. LOPINAVIR/RITONAVIR [Interacting]
     Active Substance: LOPINAVIR\RITONAVIR
     Dosage: UNK, BID
     Route: 048
  2. PROPOFOL. [Interacting]
     Active Substance: PROPOFOL
     Indication: SEDATION
     Dosage: UNK
     Route: 065
  3. DEXAMETHASONE. [Interacting]
     Active Substance: DEXAMETHASONE
     Indication: ENZYME INDUCTION
     Dosage: UNK
     Route: 065
  4. LOPINAVIR/RITONAVIR [Interacting]
     Active Substance: LOPINAVIR\RITONAVIR
     Indication: COVID-19
     Dosage: UNK, QD
     Route: 048
  5. SOTALOL. [Suspect]
     Active Substance: SOTALOL
     Indication: ATRIAL FIBRILLATION
     Dosage: UNK
     Route: 065

REACTIONS (8)
  - Drug level increased [Unknown]
  - Overdose [Unknown]
  - Bradycardia [Unknown]
  - Drug interaction [Unknown]
  - Cholecystitis [Unknown]
  - Hypertriglyceridaemia [Unknown]
  - Food interaction [Unknown]
  - Off label use [Unknown]
